FAERS Safety Report 11089841 (Version 2)
Quarter: 2016Q2

REPORT INFORMATION
  Report Type: Spontaneous
  Country: US (occurrence: US)
  Receive Date: 20150505
  Receipt Date: 20160428
  Transmission Date: 20160815
  Serious: Yes (Other)
  Sender: FDA-Public Use
  Company Number: US-ENDO PHARMACEUTICALS INC.-2015-000734

PATIENT
  Age: 53 Year
  Sex: Female

DRUGS (2)
  1. TRIXAICIN [Suspect]
     Active Substance: CAPSICUM OLEORESIN
     Indication: PAIN
     Route: 061
     Dates: start: 20150426
  2. TRIXAICIN [Suspect]
     Active Substance: CAPSICUM OLEORESIN
     Indication: RASH

REACTIONS (2)
  - Chest pain [Recovered/Resolved]
  - Burning sensation [Not Recovered/Not Resolved]

NARRATIVE: CASE EVENT DATE: 201504
